FAERS Safety Report 15033272 (Version 2)
Quarter: 2018Q3

REPORT INFORMATION
  Report Type: Report from Study
  Country: CO (occurrence: CO)
  Receive Date: 20180619
  Receipt Date: 20180816
  Transmission Date: 20181010
  Serious: Yes (Death, Life-Threatening, Hospitalization, Other)
  Sender: FDA-Public Use
  Company Number: CO-BRISTOL-MYERS SQUIBB COMPANY-BMS-2018-055765

PATIENT
  Age: 61 Year
  Sex: Female

DRUGS (2)
  1. ABATACEPT [Suspect]
     Active Substance: ABATACEPT
     Indication: RHEUMATOID ARTHRITIS
     Dosage: 125 MG, QWK
     Route: 058
     Dates: start: 20140101
  2. ABATACEPT [Suspect]
     Active Substance: ABATACEPT
     Indication: RHEUMATOID ARTHRITIS
     Dosage: 500 MG, Q4WK
     Route: 042
     Dates: start: 20151014, end: 20180610

REACTIONS (2)
  - Pulmonary fibrosis [Fatal]
  - Pneumonia [Recovering/Resolving]

NARRATIVE: CASE EVENT DATE: 20180610
